FAERS Safety Report 6667166-4 (Version None)
Quarter: 2010Q2

REPORT INFORMATION
  Report Type: 
  Country: None (occurrence: None)
  Receive Date: 20100401
  Receipt Date: 20100401
  Transmission Date: 20101027
  Serious: Yes (Hospitalization)
  Sender: FDA-Public Use
  Company Number: None

PATIENT
  Age: 59 Year

DRUGS (1)
  1. ENOXAPARIN SODIUM [Suspect]
     Indication: DEEP VEIN THROMBOSIS
     Dosage: 80MG BID SQ, DAYS
     Route: 058
     Dates: start: 20091206, end: 20091210

REACTIONS (2)
  - DEEP VEIN THROMBOSIS [None]
  - DRUG DOSE OMISSION [None]
